FAERS Safety Report 7206410-1 (Version None)
Quarter: 2011Q1

REPORT INFORMATION
  Report Type: 
  Country: None (occurrence: None)
  Receive Date: 20110103
  Receipt Date: 20110103
  Transmission Date: 20110831
  Serious: Yes (Hospitalization, Other)
  Sender: FDA-Public Use
  Company Number: PHHO2009DE08655

PATIENT
  Sex: Male
  Weight: 68 kg

DRUGS (2)
  1. SANDOSTATIN LAR [Suspect]
     Indication: CARCINOID TUMOUR
     Dosage: UNK
     Dates: start: 20090508, end: 20090623
  2. PLACEBO [Suspect]
     Indication: CARCINOID TUMOUR
     Dosage: PLACEBO
     Route: 048
     Dates: start: 20090508, end: 20090623

REACTIONS (9)
  - DYSPNOEA [None]
  - METASTASES TO LIVER [None]
  - CARDIAC FAILURE [None]
  - PLEURAL EFFUSION [None]
  - PNEUMONITIS [None]
  - NEOPLASM MALIGNANT [None]
  - MITRAL VALVE INCOMPETENCE [None]
  - COUGH [None]
  - OEDEMA PERIPHERAL [None]
